FAERS Safety Report 5408757-8 (Version None)
Quarter: 2007Q3

REPORT INFORMATION
  Report Type: 
  Country: None (occurrence: None)
  Receive Date: 20070808
  Receipt Date: 20070801
  Transmission Date: 20080115
  Serious: Yes (Hospitalization)
  Sender: FDA-Public Use
  Company Number: B0482431A

PATIENT
  Age: 54 Year
  Sex: Male

DRUGS (5)
  1. QUILONORM RETARD [Suspect]
     Indication: DRUG USE FOR UNKNOWN INDICATION
     Route: 048
     Dates: start: 20051227
  2. RISPERDAL [Suspect]
     Indication: PARANOIA
     Route: 048
     Dates: start: 20060103
  3. XANOR [Concomitant]
     Route: 048
     Dates: start: 20051227
  4. SEROQUEL [Concomitant]
     Route: 048
     Dates: start: 20060110
  5. NOZINAN(LEVOMEPROMAZINE) [Concomitant]
     Dosage: 100MG PER DAY
     Route: 048
     Dates: start: 20060110, end: 20060118

REACTIONS (5)
  - DERMATITIS [None]
  - ECZEMA [None]
  - FACE OEDEMA [None]
  - MECHANICAL ACNE [None]
  - OEDEMA PERIPHERAL [None]
